FAERS Safety Report 5399701-0 (Version None)
Quarter: 2007Q3

REPORT INFORMATION
  Report Type: 
  Country: None (occurrence: None)
  Receive Date: 20070727
  Receipt Date: 20070717
  Transmission Date: 20080115
  Serious: Yes (Other)
  Sender: FDA-Public Use
  Company Number: DE-PFIZER INC-2007059678

PATIENT
  Sex: Male

DRUGS (1)
  1. CAVERJECT POWDER, STERILE [Suspect]

REACTIONS (1)
  - TRANSIENT ISCHAEMIC ATTACK [None]
